FAERS Safety Report 10560187 (Version 1)
Quarter: 2014Q4

REPORT INFORMATION
  Report Type: Spontaneous
  Country: US (occurrence: None)
  Receive Date: 20141031
  Receipt Date: 20141031
  Transmission Date: 20150529
  Serious: Yes (Hospitalization)
  Sender: FDA-Public Use
  Company Number: None

PATIENT
  Age: 73 Year
  Sex: Male
  Weight: 89.7 kg

DRUGS (1)
  1. VALSARTAN. [Suspect]
     Active Substance: VALSARTAN
     Indication: HYPERTENSION
     Route: 048
     Dates: start: 20141023, end: 20141025

REACTIONS (6)
  - Dysphagia [None]
  - Swollen tongue [None]
  - Dysphonia [None]
  - Treatment noncompliance [None]
  - Angioedema [None]
  - Blood pressure increased [None]

NARRATIVE: CASE EVENT DATE: 20141023
